FAERS Safety Report 4478187-4 (Version None)
Quarter: 2004Q4

REPORT INFORMATION
  Report Type: 
  Country: None (occurrence: None)
  Receive Date: 20041018
  Receipt Date: 20041018
  Transmission Date: 20050328
  Serious: Yes (Hospitalization)
  Sender: FDA-Public Use
  Company Number: None

PATIENT
  Sex: Male

DRUGS (11)
  1. IBUPROFEN [Suspect]
     Indication: HEADACHE
     Dosage: ^WHOLE BOTTLE^ ^PER DAY^
  2. CITALOPRAM [Concomitant]
  3. SYNTHROID [Concomitant]
  4. OMEPRAZOLE [Concomitant]
  5. TERAZOSIN HCL [Concomitant]
  6. DEXAMETHASONE [Concomitant]
  7. TRAMADOL HCL [Concomitant]
  8. XANAX [Concomitant]
  9. ODANSETRON [Concomitant]
  10. GABAPENTIN [Concomitant]
  11. METHOCARBAL [Concomitant]

REACTIONS (4)
  - DIZZINESS [None]
  - NAUSEA [None]
  - RECTAL HAEMORRHAGE [None]
  - VOMITING [None]
